FAERS Safety Report 9704341 (Version 1)
Quarter: 2013Q4

REPORT INFORMATION
  Report Type: Report from Study
  Country: CA (occurrence: CA)
  Receive Date: 20131122
  Receipt Date: 20131122
  Transmission Date: 20140711
  Serious: Yes (Other)
  Sender: FDA-Public Use
  Company Number: CA-JNJFOC-20131110584

PATIENT
  Age: 75 Year
  Sex: Female
  Weight: 65 kg

DRUGS (7)
  1. REMICADE [Suspect]
     Indication: PSORIASIS
     Route: 042
     Dates: start: 20131115
  2. REMICADE [Suspect]
     Indication: PSORIASIS
     Route: 042
     Dates: start: 20130402
  3. PREDNISONE [Concomitant]
     Route: 065
  4. ADALAT XL [Concomitant]
     Route: 065
  5. SPIROTONE [Concomitant]
     Route: 065
  6. ROSUVASTATIN [Concomitant]
     Route: 065
  7. CYCLOBENZAPRINE [Concomitant]
     Route: 065

REACTIONS (2)
  - Oedema peripheral [Recovering/Resolving]
  - Joint stiffness [Recovering/Resolving]
